FAERS Safety Report 12257652 (Version 3)
Quarter: 2017Q1

REPORT INFORMATION
  Report Type: Spontaneous
  Country: JP (occurrence: JP)
  Receive Date: 20160412
  Receipt Date: 20170314
  Transmission Date: 20170428
  Serious: Yes (Other)
  Sender: FDA-Public Use
  Company Number: JP-MALLINCKRODT-T201502523

PATIENT
  Age: 59 Year
  Sex: Male
  Weight: 66 kg

DRUGS (62)
  1. PARIET [Concomitant]
     Active Substance: RABEPRAZOLE SODIUM
     Dosage: 10 MG
     Route: 048
     Dates: start: 20150427, end: 20150511
  2. OXIFAST [Concomitant]
     Active Substance: OXYCODONE
     Dosage: 10-20 MG PRN
     Route: 051
     Dates: start: 20150420
  3. MIDAZOLAM [Concomitant]
     Active Substance: MIDAZOLAM HYDROCHLORIDE
     Dosage: 50 MG, UNK
     Route: 051
     Dates: start: 20150526, end: 20150526
  4. PROPOFOL. [Concomitant]
     Active Substance: PROPOFOL
     Dosage: 3000 MG, UNK
     Route: 051
     Dates: start: 20150514, end: 20150514
  5. PROPOFOL. [Concomitant]
     Active Substance: PROPOFOL
     Dosage: 1000 MG, UNK
     Route: 051
     Dates: start: 20150527, end: 20150527
  6. OXYCODONE SR [Concomitant]
     Active Substance: OXYCODONE
     Dosage: 40 MG, UNK
     Route: 065
     Dates: start: 20150506, end: 20150506
  7. METHADONE [Suspect]
     Active Substance: METHADONE HYDROCHLORIDE
     Dosage: 20 MG, (60 MG DAILY DOSE)
     Route: 048
     Dates: start: 20150428, end: 20150507
  8. SERENACE [Concomitant]
     Active Substance: HALOPERIDOL
     Dosage: 2.5 MG
     Route: 051
     Dates: end: 20150510
  9. ARTIST [Concomitant]
     Active Substance: CARVEDILOL
     Dosage: 5 MG
     Route: 048
     Dates: end: 20150424
  10. KETALAR [Concomitant]
     Active Substance: KETAMINE HYDROCHLORIDE
     Dosage: 6 MG
     Route: 051
     Dates: start: 20150421, end: 20150423
  11. OXIFAST [Concomitant]
     Active Substance: OXYCODONE
     Dosage: 4 MG
     Route: 051
     Dates: start: 20150421, end: 20150421
  12. OXIFAST [Concomitant]
     Active Substance: OXYCODONE
     Dosage: 2 MG
     Route: 051
     Dates: start: 20150421, end: 20150421
  13. MIDAZOLAM [Concomitant]
     Active Substance: MIDAZOLAM HYDROCHLORIDE
     Dosage: 60 MG, UNK
     Route: 051
     Dates: start: 20150514, end: 20150514
  14. MIDAZOLAM [Concomitant]
     Active Substance: MIDAZOLAM HYDROCHLORIDE
     Dosage: 100 MG, UNK
     Route: 051
     Dates: start: 20150518, end: 20150520
  15. MIDAZOLAM [Concomitant]
     Active Substance: MIDAZOLAM HYDROCHLORIDE
     Dosage: 50 MG, UNK
     Route: 051
     Dates: start: 20150521, end: 20150521
  16. MIDAZOLAM [Concomitant]
     Active Substance: MIDAZOLAM HYDROCHLORIDE
     Dosage: 100 MG, UNK
     Route: 051
     Dates: start: 20150525, end: 20150525
  17. PROPOFOL. [Concomitant]
     Active Substance: PROPOFOL
     Dosage: 2000 MG, UNK
     Route: 051
     Dates: start: 20150519, end: 20150519
  18. PROPOFOL. [Concomitant]
     Active Substance: PROPOFOL
     Dosage: 3000 MG, UNK
     Route: 051
     Dates: start: 20150523, end: 20150523
  19. WYPAX [Concomitant]
     Active Substance: LORAZEPAM
     Dosage: 0.5 MG, UNK
     Route: 048
     Dates: start: 20150503, end: 20150509
  20. ANAPEINE [Concomitant]
     Active Substance: ROPIVACAINE HYDROCHLORIDE
     Dosage: 72 MG, UNK
     Route: 051
     Dates: start: 20150508, end: 20150508
  21. OXYCODONE SR [Concomitant]
     Active Substance: OXYCODONE
     Dosage: 60 MG, UNK
     Route: 065
     Dates: start: 20150507, end: 20150510
  22. LYRICA [Concomitant]
     Active Substance: PREGABALIN
     Dosage: 150 MG
     Route: 048
     Dates: start: 20150427, end: 20150513
  23. RISPERDAL M-TAB [Concomitant]
     Active Substance: RISPERIDONE
     Dosage: 1 MG
     Dates: end: 20150509
  24. SCOPOLAMINE BUTYLBROMIDE [Concomitant]
     Active Substance: SCOPOLAMINE
     Indication: ANALGESIC THERAPY
     Dosage: 10 MG
     Route: 048
     Dates: end: 20150424
  25. PROPOFOL. [Concomitant]
     Active Substance: PROPOFOL
     Dosage: 1000 MG, UNK
     Route: 051
     Dates: start: 20150524, end: 20150524
  26. OXYCODONE SR [Concomitant]
     Active Substance: OXYCODONE
     Dosage: 100 MG, UNK
     Route: 065
     Dates: start: 20150511, end: 20150511
  27. LYRICA [Concomitant]
     Active Substance: PREGABALIN
     Indication: ANALGESIC THERAPY
     Dosage: 75 MG
     Route: 048
     Dates: end: 20150424
  28. PROPOFOL. [Concomitant]
     Active Substance: PROPOFOL
     Dosage: 4000 MG, UNK
     Route: 051
     Dates: start: 20150520, end: 20150520
  29. SENNOSIDE [Concomitant]
     Active Substance: SENNOSIDES
     Dosage: 24 MG, UNK
     Route: 048
     Dates: start: 20150503, end: 20150513
  30. ANAPEINE [Concomitant]
     Active Substance: ROPIVACAINE HYDROCHLORIDE
     Dosage: 85.5 MG, UNK
     Route: 051
     Dates: start: 20150509, end: 20150509
  31. OXYCODONE SR [Concomitant]
     Active Substance: OXYCODONE
     Dosage: 40 MG, UNK
     Route: 065
     Dates: start: 20150514, end: 20150514
  32. PROPOFOL. [Concomitant]
     Active Substance: PROPOFOL
     Dosage: 1000 MG, UNK
     Route: 051
     Dates: start: 20150510, end: 20150511
  33. PROPOFOL. [Concomitant]
     Active Substance: PROPOFOL
     Dosage: 2000 MG, UNK
     Route: 051
     Dates: start: 20150512, end: 20150512
  34. PROPOFOL. [Concomitant]
     Active Substance: PROPOFOL
     Dosage: 2000 MG, UNK
     Route: 051
     Dates: start: 20150515, end: 20150515
  35. ANAPEINE [Concomitant]
     Active Substance: ROPIVACAINE HYDROCHLORIDE
     Indication: ANALGESIC THERAPY
     Dosage: 30 MG, UNK
     Route: 051
     Dates: start: 20150507, end: 20150507
  36. METHADONE [Suspect]
     Active Substance: METHADONE HYDROCHLORIDE
     Dosage: 25 MG, (75 MG DAILY DOSE)
     Route: 048
     Dates: start: 20150508, end: 20150513
  37. BFLUID [Concomitant]
     Active Substance: AMINO ACIDS\DEXTROSE\ELECTROLYTES NOS\VITAMINS
     Dosage: 500 ML
     Route: 051
     Dates: end: 20150424
  38. DECADRON [Concomitant]
     Active Substance: DEXAMETHASONE
     Dosage: 4 MG
     Route: 048
     Dates: end: 20150511
  39. OXIFAST [Concomitant]
     Active Substance: OXYCODONE
     Indication: ANALGESIC THERAPY
     Dosage: 7.5  MG
     Route: 051
     Dates: end: 20150421
  40. PROPOFOL. [Concomitant]
     Active Substance: PROPOFOL
     Dosage: 4000 MG, UNK
     Route: 051
     Dates: start: 20150516, end: 20150516
  41. PROPOFOL. [Concomitant]
     Active Substance: PROPOFOL
     Dosage: 3000 MG, UNK
     Route: 051
     Dates: start: 20150517, end: 20150518
  42. PROPOFOL. [Concomitant]
     Active Substance: PROPOFOL
     Dosage: 2000 MG, UNK
     Route: 051
     Dates: start: 20150525, end: 20150526
  43. OXINORM [Concomitant]
     Active Substance: OXYCODONE HYDROCHLORIDE
     Indication: ANALGESIC THERAPY
     Dosage: 20 MG, PRN
     Route: 048
     Dates: start: 20150510
  44. FENTOS [Concomitant]
     Active Substance: FENTANYL
     Indication: ANALGESIC THERAPY
     Dosage: 10MG
     Route: 062
     Dates: end: 20150422
  45. LOBU [Concomitant]
     Active Substance: LOBUCAVIR
     Indication: ANALGESIC THERAPY
     Dosage: 180 MG
     Route: 048
     Dates: end: 20150424
  46. SEROQUEL [Concomitant]
     Active Substance: QUETIAPINE FUMARATE
     Dosage: 25 MG
     Route: 048
     Dates: end: 20150509
  47. MAGMITT [Concomitant]
     Active Substance: MAGNESIUM OXIDE
     Dosage: 3000 MG
     Route: 048
     Dates: end: 20150513
  48. MIDAZOLAM [Concomitant]
     Active Substance: MIDAZOLAM HYDROCHLORIDE
     Dosage: 100 MG, UNK
     Route: 051
     Dates: start: 20150522, end: 20150522
  49. MIDAZOLAM [Concomitant]
     Active Substance: MIDAZOLAM HYDROCHLORIDE
     Dosage: 50 MG, UNK
     Route: 051
     Dates: start: 20150523, end: 20150524
  50. MIDAZOLAM [Concomitant]
     Active Substance: MIDAZOLAM HYDROCHLORIDE
     Dosage: 100 MG, UNK
     Route: 051
     Dates: start: 20150527, end: 20150527
  51. PROPOFOL. [Concomitant]
     Active Substance: PROPOFOL
     Dosage: 4000 MG, UNK
     Route: 051
     Dates: start: 20150513, end: 20150513
  52. ANAPEINE [Concomitant]
     Active Substance: ROPIVACAINE HYDROCHLORIDE
     Dosage: 108 MG, UNK
     Route: 051
     Dates: start: 20150510, end: 20150513
  53. OXYCODONE SR [Concomitant]
     Active Substance: OXYCODONE
     Dosage: 20 MG, UNK
     Route: 065
     Dates: start: 20150504, end: 20150505
  54. METHADONE [Suspect]
     Active Substance: METHADONE HYDROCHLORIDE
     Indication: CANCER PAIN
     Dosage: 15 MG (45 MG DAILY DOSE)
     Route: 048
     Dates: start: 20150421, end: 20150427
  55. ABSTRAL [Concomitant]
     Active Substance: FENTANYL CITRATE
     Indication: ANALGESIC THERAPY
     Dosage: 100-200 ?G, PRN
     Route: 060
     Dates: start: 20150426
  56. TAMSULOSIN [Concomitant]
     Active Substance: TAMSULOSIN
     Dosage: 0.2 MG
     Route: 048
     Dates: end: 20150513
  57. SELBEX [Concomitant]
     Active Substance: TEPRENONE
     Dosage: 150 MG
     Route: 048
     Dates: end: 20150421
  58. KETALAR [Concomitant]
     Active Substance: KETAMINE HYDROCHLORIDE
     Indication: ANALGESIC THERAPY
     Dosage: 8 MG
     Route: 051
     Dates: end: 20150421
  59. MIDAZOLAM [Concomitant]
     Active Substance: MIDAZOLAM HYDROCHLORIDE
     Dosage: 50 MG, UNK
     Route: 051
     Dates: start: 20150515, end: 20150517
  60. MIDAZOLAM [Concomitant]
     Active Substance: MIDAZOLAM HYDROCHLORIDE
     Dosage: 50 MG, UNK
     Route: 051
     Dates: start: 20150528, end: 20150528
  61. PROPOFOL. [Concomitant]
     Active Substance: PROPOFOL
     Dosage: 2000 MG, UNK
     Route: 051
     Dates: start: 20150521, end: 20150522
  62. OXYCODONE SR [Concomitant]
     Active Substance: OXYCODONE
     Dosage: 120 MG, UNK
     Route: 065
     Dates: start: 20150512, end: 20150513

REACTIONS (2)
  - Delirium [Not Recovered/Not Resolved]
  - Electrocardiogram QT prolonged [Not Recovered/Not Resolved]

NARRATIVE: CASE EVENT DATE: 20150422
